FAERS Safety Report 6203033-8 (Version None)
Quarter: 2009Q2

REPORT INFORMATION
  Report Type: 
  Country: None (occurrence: None)
  Receive Date: 20090521
  Receipt Date: 20090521
  Transmission Date: 20091009
  Serious: Yes (Life-Threatening, Other)
  Sender: FDA-Public Use
  Company Number: None

PATIENT
  Age: 34 Year
  Sex: Female
  Weight: 42.1845 kg

DRUGS (4)
  1. LYRICA [Suspect]
     Indication: TRIGEMINAL NEURALGIA
     Dosage: 100MG EVERY AM/PM PO APPROXIMATELY 4-5 MONTHS
     Route: 048
  2. LYRICA [Suspect]
     Dosage: 150MG AT LUNCH TIME PO
     Route: 048
  3. DILAUDID [Concomitant]
  4. LORTAB [Concomitant]

REACTIONS (4)
  - CONVULSION [None]
  - PAIN [None]
  - PLATELET COUNT DECREASED [None]
  - VOMITING [None]
